FAERS Safety Report 8455024-4 (Version None)
Quarter: 2012Q2

REPORT INFORMATION
  Report Type: 
  Country: None (occurrence: None)
  Receive Date: 20120615
  Receipt Date: 20120615
  Transmission Date: 20120825
  Serious: Yes (Life-Threatening, Other)
  Sender: FDA-Public Use
  Company Number: None

PATIENT
  Age: 74 Year
  Sex: Female
  Weight: 62.5964 kg

DRUGS (1)
  1. CIPROFLOXACIN HCL [Suspect]
     Indication: URINARY TRACT INFECTION
     Dosage: 250 MG 2 DAILY
     Dates: start: 20120525, end: 20120527

REACTIONS (7)
  - TREMOR [None]
  - ARTHRALGIA [None]
  - HEADACHE [None]
  - HEART RATE INCREASED [None]
  - DIZZINESS [None]
  - VERTIGO [None]
  - BLOOD PRESSURE INCREASED [None]
